FAERS Safety Report 6315373 (Version 3)
Quarter: 2013Q1

REPORT INFORMATION
  Report Type: Report from Study
  Country: NZ (occurrence: NZ)
  Receive Date: 20070518
  Receipt Date: 20130222
  Transmission Date: 20140127
  Serious: Yes (Other)
  Sender: FDA-Public Use
  Company Number: PHHO2007NZ07845

PATIENT
  Age: 64 Year
  Sex: Male
  Weight: 99 kg

DRUGS (6)
  1. ZOLEDRONATE [Suspect]
     Indication: METASTASES TO BONE
     Dosage: 4MG EVERY 4 WEEKS
     Route: 042
     Dates: start: 20051017, end: 20070330
  2. CALCIUM [Concomitant]
     Dosage: UNK
  3. VITAMIN D [Concomitant]
     Dosage: UNK
  4. DOXAZOSIN [Concomitant]
     Indication: HYPERTENSION
     Dosage: UNK
  5. OMEPRAZOLE [Concomitant]
     Indication: GASTROOESOPHAGEAL REFLUX DISEASE
     Dosage: UNK
  6. ACCUPRIL [Concomitant]
     Indication: HYPERTENSION
     Dosage: UNK

REACTIONS (5)
  - Osteonecrosis of jaw [Recovered/Resolved]
  - Tooth infection [Recovered/Resolved]
  - Periodontal disease [Recovered/Resolved]
  - Tooth abscess [Recovered/Resolved]
  - Tooth fracture [Recovered/Resolved]
